FAERS Safety Report 14115709 (Version 2)
Quarter: 2017Q4

REPORT INFORMATION
  Report Type: Spontaneous
  Country: CR (occurrence: CR)
  Receive Date: 20171023
  Receipt Date: 20171122
  Transmission Date: 20180321
  Serious: Yes (Other)
  Sender: FDA-Public Use
  Company Number: CR-PFIZER INC-2017454317

PATIENT
  Age: 60 Year
  Sex: Female

DRUGS (2)
  1. PANTECTA [Suspect]
     Active Substance: PANTOPRAZOLE SODIUM
     Indication: OESOPHAGITIS
     Dosage: UNK
     Route: 065
  2. NEXIUM [Concomitant]
     Active Substance: ESOMEPRAZOLE MAGNESIUM
     Dosage: UNK

REACTIONS (4)
  - Thyroid disorder [Unknown]
  - Malaise [Unknown]
  - Parathyroid disorder [Unknown]
  - Hypocalcaemia [Unknown]
